FAERS Safety Report 6832308-4 (Version None)
Quarter: 2010Q3

REPORT INFORMATION
  Report Type: 
  Country: None (occurrence: None)
  Receive Date: 20100712
  Receipt Date: 20100630
  Transmission Date: 20110219
  Serious: Yes (Other)
  Sender: FDA-Public Use
  Company Number: CA-PFIZER INC-2010076984

PATIENT
  Age: 50 Year
  Sex: Female
  Weight: 65 kg

DRUGS (6)
  1. SUNITINIB MALATE [Suspect]
     Indication: MALIGNANT NEOPLASM OF ISLETS OF LANGERHANS
     Dosage: 37.5 MG, 1X/DAY
     Route: 048
     Dates: start: 20090410, end: 20100608
  2. HYDROCHLOROTHIAZIDE [Concomitant]
     Indication: HYPERTENSION
     Dosage: 25 MG, 1X/DAY
     Route: 048
     Dates: start: 20090407
  3. LANOLIN [Concomitant]
     Indication: DRY SKIN
     Dosage: ONE APPLICATION/DAY
     Route: 061
     Dates: start: 20080730
  4. RAMIPRIL [Concomitant]
     Indication: HYPERTENSION
     Dosage: 10 MG, 1X/DAY
     Route: 048
     Dates: start: 20090417
  5. IMODIUM [Concomitant]
     Indication: DIARRHOEA
     Dosage: 2 MG, EVERY 4 HOURS AS NEEDED
     Route: 048
     Dates: start: 20090801, end: 20100531
  6. VITAMIN D [Concomitant]
     Indication: SUPPLEMENTATION THERAPY
     Dosage: UNK
     Route: 048
     Dates: start: 20091201

REACTIONS (1)
  - THROMBOCYTOSIS [None]
